FAERS Safety Report 8163824 (Version 5)
Quarter: 2013Q1

REPORT INFORMATION
  Report Type: Spontaneous
  Country: US (occurrence: US)
  Receive Date: 20110930
  Receipt Date: 20130214
  Transmission Date: 20140127
  Serious: Yes (Other)
  Sender: FDA-Public Use
  Company Number: US-US-EMD SERONO, INC.-7085175

PATIENT
  Sex: Female
  Weight: 82 kg

DRUGS (7)
  1. REBIF [Suspect]
     Indication: MULTIPLE SCLEROSIS
     Dates: start: 20100318, end: 20110824
  2. REBIF [Suspect]
     Route: 058
  3. CELEXA [Concomitant]
     Indication: DEPRESSION
  4. NEURONTIN [Concomitant]
     Indication: PAIN
  5. TOPAMAX [Concomitant]
     Indication: HEADACHE
  6. ZOFRAN [Concomitant]
     Indication: NAUSEA
  7. COMPAZINE [Concomitant]
     Indication: NAUSEA

REACTIONS (4)
  - Parathyroid tumour benign [Recovered/Resolved]
  - Gastrointestinal pain [Unknown]
  - Nausea [Unknown]
  - Fatigue [Unknown]
